FAERS Safety Report 9462153 (Version 1)
Quarter: 2013Q3

REPORT INFORMATION
  Report Type: Spontaneous
  Country: FR (occurrence: FR)
  Receive Date: 20130816
  Receipt Date: 20130816
  Transmission Date: 20140515
  Serious: Yes (Life-Threatening, Hospitalization)
  Sender: FDA-Public Use
  Company Number: FR-ASTRAZENECA-2013SE63079

PATIENT
  Age: 14983 Day
  Sex: Female

DRUGS (6)
  1. XYLOCAINE [Suspect]
     Dosage: AT 19:30, TWO INJECTIONS OF 3 ML XYLOCAINE 2 PERCENT ADRENALINE
     Route: 037
     Dates: start: 20130704, end: 20130704
  2. XYLOCAINE [Suspect]
     Dosage: AT 22:00, 3 ML OF XYLOCAINE ADRENALINE WERE INJECTED IN BOLUS
     Route: 037
     Dates: start: 20130704, end: 20130704
  3. NAROPEINE [Suspect]
     Dosage: AT AROUND 19:30, 0.5 (5 ML, FRACTIONATED)
     Route: 037
     Dates: start: 20130704, end: 20130704
  4. NAROPEINE [Suspect]
     Dosage: AT AROUND 19:30, 1.5 WITH MAINTENANCE SPEED (5-6)
     Route: 037
     Dates: start: 20130704, end: 20130704
  5. NAROPEINE [Suspect]
     Dosage: AT 21:00, 3 ML OF NAROPEINE WERE INJECTED IN BOLUS
     Route: 037
     Dates: start: 20130704, end: 20130704
  6. SUFENTANIL [Suspect]
     Dosage: AT AROUND 19:30, 1 DF, ONCE/SINGLE ADMINISTRATION
     Route: 037
     Dates: start: 20130704, end: 20130704

REACTIONS (4)
  - Chest discomfort [Recovered/Resolved]
  - Uterine hypertonus [Recovered/Resolved]
  - Dyspnoea [Recovered/Resolved]
  - Hypotension [Recovered/Resolved]
